FAERS Safety Report 9267082 (Version 2)
Quarter: 2013Q2

REPORT INFORMATION
  Report Type: Report from Study
  Country: DE (occurrence: DE)
  Receive Date: 20130502
  Receipt Date: 20130517
  Transmission Date: 20140414
  Serious: Yes (Hospitalization)
  Sender: FDA-Public Use
  Company Number: DE-AMGEN-DEUCT2013030206

PATIENT
  Age: 74 Year
  Sex: Male
  Weight: 81 kg

DRUGS (11)
  1. PANITUMUMAB [Suspect]
     Indication: GASTROINTESTINAL CARCINOMA
     Dosage: 490 MG, UNK
     Route: 042
     Dates: start: 20110512
  2. DOCETAXEL [Concomitant]
     Indication: GASTROINTESTINAL CARCINOMA
     Dosage: 95 MG, UNK
     Route: 042
     Dates: start: 20110512
  3. 5-FLUOROURACIL [Concomitant]
     Indication: GASTROINTESTINAL CARCINOMA
     Dosage: 4300 MG, UNK
     Route: 042
     Dates: start: 20110512
  4. LEUCOVORIN [Concomitant]
     Indication: GASTROINTESTINAL CARCINOMA
     Dosage: 390 MG, UNK
     Route: 042
     Dates: start: 20110512
  5. OXALIPLATIN [Concomitant]
     Indication: GASTROINTESTINAL CARCINOMA
     Dosage: 170 MG, UNK
     Route: 042
     Dates: start: 20110512
  6. GLUCOPHAGE [Concomitant]
     Dosage: 1250 MG, UNK
  7. SIMVAHEXAL [Concomitant]
     Dosage: 5.0 MG, UNK
  8. CONCOR [Concomitant]
     Dosage: 5.0 MG, UNK
  9. DELIX [Concomitant]
     Dosage: 2.5 MG, UNK
  10. ESIDRIX [Concomitant]
     Dosage: 25 MG, UNK
     Dates: start: 20110623
  11. LOCACORTEN VIOFORM [Concomitant]
     Dosage: UNK
     Dates: start: 20110616

REACTIONS (1)
  - Febrile infection [Recovered/Resolved]
